FAERS Safety Report 8162825-9 (Version None)
Quarter: 2012Q1

REPORT INFORMATION
  Report Type: 
  Country: None (occurrence: None)
  Receive Date: 20120221
  Receipt Date: 20120201
  Transmission Date: 20120608
  Serious: Yes (Other)
  Sender: FDA-Public Use
  Company Number: JPI-P-018400

PATIENT
  Age: 36 Year
  Sex: 0
  Weight: 114.3065 kg

DRUGS (7)
  1. LYRICA [Concomitant]
  2. CARDURA [Concomitant]
  3. DICLOFENAC SODIUM [Concomitant]
  4. SYNTHROID [Concomitant]
  5. XYREM [Suspect]
     Indication: NARCOLEPSY
     Dosage: ORAL;9 GM (4.5 GM, 2 IN 1 D), ORAL
     Route: 048
     Dates: start: 20101021
  6. XYREM [Suspect]
     Indication: SOMNOLENCE
     Dosage: ORAL;9 GM (4.5 GM, 2 IN 1 D), ORAL
     Route: 048
     Dates: start: 20101021
  7. DEXTROAMPHETAMINE [Concomitant]

REACTIONS (34)
  - BLOOD PRESSURE DIASTOLIC DECREASED [None]
  - BRONCHITIS [None]
  - ASTHENIA [None]
  - TREMOR [None]
  - VIITH NERVE PARALYSIS [None]
  - NERVOUSNESS [None]
  - SENSATION OF PRESSURE [None]
  - BLOOD PRESSURE SYSTOLIC INCREASED [None]
  - SINUSITIS [None]
  - STRESS [None]
  - DIZZINESS [None]
  - EAR INFECTION [None]
  - PHARYNGITIS [None]
  - ANXIETY [None]
  - URINE OUTPUT DECREASED [None]
  - HYPERSENSITIVITY [None]
  - MIDDLE INSOMNIA [None]
  - EAR INJURY [None]
  - RENAL PAIN [None]
  - LACRIMATION INCREASED [None]
  - BODY TEMPERATURE DECREASED [None]
  - OTITIS MEDIA [None]
  - SOMNOLENCE [None]
  - MUSCLE TIGHTNESS [None]
  - LEUKOCYTOSIS [None]
  - C-REACTIVE PROTEIN INCREASED [None]
  - CHOLELITHIASIS [None]
  - VITAMIN D DECREASED [None]
  - SWELLING FACE [None]
  - DYSPNOEA [None]
  - PANIC ATTACK [None]
  - FACIAL PAIN [None]
  - BURNING SENSATION [None]
  - HYPOTENSION [None]
